FAERS Safety Report 7644838-6 (Version None)
Quarter: 2011Q3

REPORT INFORMATION
  Report Type: 
  Country: None (occurrence: None)
  Receive Date: 20110729
  Receipt Date: 20110720
  Transmission Date: 20111222
  Serious: Yes (Hospitalization)
  Sender: FDA-Public Use
  Company Number: ZA-PFIZER INC-2011171773

PATIENT
  Sex: Male

DRUGS (1)
  1. SUTENT [Suspect]
     Indication: RENAL CANCER
     Dosage: 4 WEEKS ON AND 2 WEEKS OFF

REACTIONS (5)
  - MALAISE [None]
  - DYSURIA [None]
  - GAIT DISTURBANCE [None]
  - ASTHENIA [None]
  - WALKING AID USER [None]
